FAERS Safety Report 4944088-8 (Version None)
Quarter: 2006Q1

REPORT INFORMATION
  Report Type: 
  Country: None (occurrence: None)
  Receive Date: 20060310
  Receipt Date: 20060228
  Transmission Date: 20060701
  Serious: Yes (Other)
  Sender: FDA-Public Use
  Company Number: HQWYE719008FEB06

PATIENT
  Age: 49 Year
  Sex: Female
  Weight: 81.8 kg

DRUGS (3)
  1. MYLOTARG [Suspect]
     Indication: ACUTE MYELOID LEUKAEMIA
     Dosage: 12.1 MG 1X PER 1 DAY, INTRAVENOUS
     Route: 042
     Dates: start: 20060201, end: 20060201
  2. CYTARABINE [Concomitant]
  3. METHYLPREDNISOLONE [Concomitant]

REACTIONS (6)
  - ALANINE AMINOTRANSFERASE INCREASED [None]
  - ASPARTATE AMINOTRANSFERASE INCREASED [None]
  - CHILLS [None]
  - HYPERGLYCAEMIA [None]
  - INFUSION RELATED REACTION [None]
  - PYREXIA [None]
